FAERS Safety Report 24869257 (Version 2)
Quarter: 2025Q3

REPORT INFORMATION
  Report Type: Spontaneous
  Country: JP (occurrence: JP)
  Receive Date: 20250121
  Receipt Date: 20250903
  Transmission Date: 20251021
  Serious: Yes (Death, Hospitalization, Other)
  Sender: ALEXION PHARMACEUTICALS
  Company Number: JP-ASTRAZENECA-250005772_013120_P_1

PATIENT
  Age: 70 Year

DRUGS (1)
  1. IMFINZI [Suspect]
     Active Substance: DURVALUMAB
     Indication: Non-small cell lung cancer
     Dosage: 1500 MILLIGRAM, Q4W

REACTIONS (2)
  - Pneumonitis [Recovered/Resolved]
  - Cholangitis [Fatal]
